FAERS Safety Report 5825773-2 (Version None)
Quarter: 2008Q3

REPORT INFORMATION
  Report Type: 
  Country: None (occurrence: None)
  Receive Date: 20080728
  Receipt Date: 20080728
  Transmission Date: 20090109
  Serious: Yes (Other)
  Sender: FDA-Public Use
  Company Number: None

PATIENT
  Sex: Female

DRUGS (1)
  1. BAYER HEART ADVANTAGE (ACETYLSALICYLIC ACID) [Suspect]
     Indication: DRUG USE FOR UNKNOWN INDICATION
     Dosage: 81 MG, ORAL
     Route: 048

REACTIONS (1)
  - ANAPHYLACTIC SHOCK [None]
